FAERS Safety Report 19489088 (Version 2)
Quarter: 2021Q3

REPORT INFORMATION
  Report Type: Spontaneous
  Country: NL (occurrence: NL)
  Receive Date: 20210703
  Receipt Date: 20210703
  Transmission Date: 20211014
  Serious: Yes (Other)
  Sender: FDA-Public Use
  Company Number: NL-TEVA-2021-NL-1928050

PATIENT
  Age: 29 Month
  Sex: Female
  Weight: 14 kg

DRUGS (2)
  1. PREDNISOLON DRANK 5MG/ML / BRAND NAME NOT SPECIFIED [Concomitant]
     Dosage: 5 MG/ML (MILLIGRAMS PER MILLILITER), THERAPY START DATE:ASKU, THERAPY END DATE:ASKU
  2. SALBUTAMOL AEROSOL 100UG/DO / BRAND NAME NOT SPECIFIED [Suspect]
     Active Substance: ALBUTEROL
     Indication: ASTHMA
     Dosage: IF NECESSARY IN CASE OF COMPLAINTS, THERAPY END DATE:ASKU
     Dates: start: 20210608

REACTIONS (1)
  - Hallucination [Recovered/Resolved]

NARRATIVE: CASE EVENT DATE: 20210608
